FAERS Safety Report 6959394-5 (Version None)
Quarter: 2010Q3

REPORT INFORMATION
  Report Type: 
  Country: None (occurrence: None)
  Receive Date: 20100831
  Receipt Date: 20100830
  Transmission Date: 20110219
  Serious: Yes (Hospitalization)
  Sender: FDA-Public Use
  Company Number: NO-MERCK-1008NOR00005

PATIENT
  Age: 70 Year
  Sex: Female

DRUGS (7)
  1. SINEMET [Suspect]
     Indication: PARKINSON'S DISEASE
     Route: 048
     Dates: start: 20100501, end: 20100719
  2. SINEMET [Suspect]
     Route: 048
     Dates: start: 20100719, end: 20100806
  3. SINEMET [Suspect]
     Route: 048
     Dates: start: 20100801, end: 20100813
  4. SELEGILINE HYDROCHLORIDE [Suspect]
     Indication: PARKINSON'S DISEASE
     Route: 048
     Dates: start: 20100719, end: 20100804
  5. PREDNISONE [Concomitant]
     Route: 048
  6. CALCIUM CARBONATE AND CHOLECALCIFEROL [Concomitant]
     Indication: OSTEOPOROSIS PROPHYLAXIS
     Route: 048
  7. ALENDRONATE SODIUM [Concomitant]
     Route: 048

REACTIONS (4)
  - ANXIETY [None]
  - ASTHENIA [None]
  - MALAISE [None]
  - NAUSEA [None]
